FAERS Safety Report 5767966-9 (Version None)
Quarter: 2008Q2

REPORT INFORMATION
  Report Type: 
  Country: None (occurrence: None)
  Receive Date: 20080612
  Receipt Date: 20080603
  Transmission Date: 20081010
  Serious: Yes (Hospitalization)
  Sender: FDA-Public Use
  Company Number: US-PFIZER INC-2008047741

PATIENT
  Sex: Female
  Weight: 81.6 kg

DRUGS (13)
  1. GABAPENTIN [Suspect]
     Indication: RHEUMATOID ARTHRITIS
     Dosage: DAILY DOSE:600MG
     Route: 048
  2. ALPRAZOLAM [Suspect]
     Route: 048
  3. CLONAZEPAM [Suspect]
     Route: 048
  4. HUMIRA [Suspect]
     Indication: RHEUMATOID ARTHRITIS
     Route: 058
  5. LUNESTA [Suspect]
     Indication: SLEEP DISORDER
     Route: 048
  6. ZOLPIDEM TARTRATE [Suspect]
     Indication: SLEEP DISORDER
     Route: 048
  7. CEVIMELINE HYDROCHLORIDE [Concomitant]
     Route: 048
  8. HYDROXYCHLOROQUINE SULFATE [Concomitant]
     Indication: RHEUMATOID ARTHRITIS
     Route: 048
  9. FOLIC ACID [Concomitant]
  10. FISH OIL [Concomitant]
     Indication: SUPPLEMENTATION THERAPY
     Route: 048
  11. FLUOXETINE HYDROCHLORIDE [Concomitant]
     Indication: DEPRESSION
     Route: 048
  12. TRAZODONE HCL [Concomitant]
     Indication: DEPRESSION
     Dosage: DAILY DOSE:150MG
     Route: 048
  13. METHOTREXATE [Concomitant]
     Indication: RHEUMATOID ARTHRITIS
     Route: 048

REACTIONS (2)
  - MEMORY IMPAIRMENT [None]
  - OVERDOSE [None]
